FAERS Safety Report 8529693-4 (Version None)
Quarter: 2012Q3

REPORT INFORMATION
  Report Type: 
  Country: None (occurrence: None)
  Receive Date: 20120723
  Receipt Date: 20120712
  Transmission Date: 20120928
  Serious: Yes (Hospitalization)
  Sender: FDA-Public Use
  Company Number: SE-JNJFOC-20120705291

PATIENT
  Sex: Female

DRUGS (1)
  1. ETHINYL ESTRADIOL AND NORETHINDRONE [Suspect]
     Indication: CONTRACEPTION
     Route: 065
     Dates: start: 20120401

REACTIONS (2)
  - RENAL INFARCT [None]
  - SJOGREN'S SYNDROME [None]
